FAERS Safety Report 18459239 (Version 8)
Quarter: 2021Q2

REPORT INFORMATION
  Report Type: Spontaneous
  Country: DE (occurrence: DE)
  Receive Date: 20201103
  Receipt Date: 20210421
  Transmission Date: 20210717
  Serious: Yes (Life-Threatening, Hospitalization, Other)
  Sender: FDA-Public Use
  Company Number: DE-PFIZER INC-2020424192

PATIENT
  Age: 81 Year
  Sex: Male
  Weight: 95 kg

DRUGS (20)
  1. TAMSULOSIN [Interacting]
     Active Substance: TAMSULOSIN
     Indication: BENIGN PROSTATIC HYPERPLASIA
     Dosage: 0.4 MG, 1X/DAY( 1?0?0?0))
  2. MARCUMAR [Concomitant]
     Active Substance: PHENPROCOUMON
     Indication: ANTICOAGULANT THERAPY
     Dosage: 1 DF, 1X/DAY
  3. METFORMIN [Concomitant]
     Active Substance: METFORMIN HYDROCHLORIDE
     Indication: DIABETES MELLITUS
     Dosage: 500 MG, BID  (ONCE IN 12 HOURS)
  4. METFORMIN [Concomitant]
     Active Substance: METFORMIN HYDROCHLORIDE
     Dosage: 1 DF, 2X/DAY
     Route: 048
  5. ENOXAPARIN [ENOXAPARIN SODIUM] [Concomitant]
     Active Substance: ENOXAPARIN SODIUM
     Indication: ANTICOAGULANT THERAPY
     Dosage: 3 MG
  6. TENSOFLUX [Interacting]
     Active Substance: AMILORIDE\BENDROFLUMETHIAZIDE
     Indication: HYPERTENSION
     Dosage: UNK
     Route: 048
  7. BENDROFLUMETHIAZIDE [Interacting]
     Active Substance: BENDROFLUMETHIAZIDE
     Indication: DIURETIC THERAPY
     Dosage: UNK
  8. METOPROLOL SUCCINATE. [Concomitant]
     Active Substance: METOPROLOL SUCCINATE
     Indication: HYPERTENSION
     Dosage: 1 DF, 1X/DAY
     Route: 048
  9. MARCUMAR [Concomitant]
     Active Substance: PHENPROCOUMON
     Indication: CORONARY ARTERY DISEASE
  10. ENOXAPARIN [ENOXAPARIN SODIUM] [Concomitant]
     Active Substance: ENOXAPARIN SODIUM
     Dosage: 70 MG, 2X/DAY(1?0?1)
     Route: 058
  11. AMPICILLIN/SULBACTAM [Concomitant]
     Active Substance: AMPICILLIN SODIUM\SULBACTAM SODIUM
     Dosage: UNK, 3X/DAY(1?1?1)
     Route: 042
  12. RAMIPRIL. [Interacting]
     Active Substance: RAMIPRIL
     Dosage: 5 MG, 1X/DAY
  13. ALNA [Interacting]
     Active Substance: TAMSULOSIN HYDROCHLORIDE
     Indication: BENIGN PROSTATIC HYPERPLASIA
     Dosage: 0.4 MG, 1X/DAY, QD
     Route: 048
  14. RAMIPRIL. [Suspect]
     Active Substance: RAMIPRIL
     Indication: HYPERTENSION
     Dosage: 2 DF, 1X/DAY
  15. RAMIPRIL. [Interacting]
     Active Substance: RAMIPRIL
     Dosage: 2.5 MG, 1X/DAY
     Route: 048
  16. PHENPROCOUMON [Interacting]
     Active Substance: PHENPROCOUMON
     Indication: ANTICOAGULANT THERAPY
     Dosage: 1 DF, 1X/DAY
     Route: 048
     Dates: end: 20190806
  17. PREDNISOLONE. [Concomitant]
     Active Substance: PREDNISOLONE
     Dosage: UNK, 1X/DAY(1?0?0)
     Route: 042
  18. STEROFUNDIN [Concomitant]
     Active Substance: CALCIUM CHLORIDE\MAGNESIUM CHLORIDE\POTASSIUM CHLORIDE\SODIUM ACETATE\SODIUM CHLORIDE
     Dosage: UNK(ISOTONIC (ELECTROLYTE SOLUTION)
     Route: 042
  19. ALLOPURINOL. [Interacting]
     Active Substance: ALLOPURINOL
     Indication: HYPERURICAEMIA
     Dosage: UNK
     Route: 048
  20. OMNIC [Interacting]
     Active Substance: TAMSULOSIN HYDROCHLORIDE
     Indication: BENIGN PROSTATIC HYPERPLASIA
     Dosage: 0.4 MG, 1X/DAY, QD
     Route: 048

REACTIONS (18)
  - Wound haemorrhage [Recovering/Resolving]
  - Purpura [Recovered/Resolved]
  - Pustule [Recovered/Resolved]
  - Toxic epidermal necrolysis [Recovering/Resolving]
  - Self-medication [Recovered/Resolved]
  - Skin discolouration [Recovered/Resolved]
  - Drug interaction [Recovering/Resolving]
  - Gait disturbance [Recovered/Resolved]
  - Malaise [Recovered/Resolved]
  - Skin exfoliation [Recovered/Resolved]
  - Leukocytosis [Recovered/Resolved]
  - Stevens-Johnson syndrome [Recovering/Resolving]
  - Blister [Recovered/Resolved]
  - Red blood cell sedimentation rate increased [Recovered/Resolved]
  - C-reactive protein increased [Recovered/Resolved]
  - Wound [Recovered/Resolved]
  - Rash [Recovered/Resolved]
  - Pain [Recovered/Resolved]

NARRATIVE: CASE EVENT DATE: 2019
